FAERS Safety Report 5899260-X (Version None)
Quarter: 2008Q3

REPORT INFORMATION
  Report Type: 
  Country: None (occurrence: None)
  Receive Date: 20080925
  Receipt Date: 20080910
  Transmission Date: 20090109
  Serious: Yes (Hospitalization)
  Sender: FDA-Public Use
  Company Number: DK-GENENTECH-268084

PATIENT
  Sex: Female

DRUGS (2)
  1. AVASTIN [Suspect]
     Indication: GASTROINTESTINAL CARCINOMA
     Dosage: 574 MG, Q2W
     Route: 042
     Dates: start: 20070829, end: 20080212
  2. ERLOTINIB [Suspect]
     Indication: GASTROINTESTINAL CARCINOMA
     Dosage: 150 MG, QD
     Route: 048
     Dates: start: 20070829, end: 20080212

REACTIONS (1)
  - HAEMOGLOBIN DECREASED [None]
